FAERS Safety Report 8701261 (Version 2)
Quarter: 2012Q4

REPORT INFORMATION
  Report Type: 
  Country: US (occurrence: US)
  Receive Date: 20120802
  Receipt Date: 20121204
  Transmission Date: 20130627
  Serious: No
  Sender: FDA-Public Use
  Company Number: US-AMGEN-USASP2012043205

PATIENT
  Age: 52 Year
  Sex: Male

DRUGS (1)
  1. ENBREL [Suspect]
     Indication: RHEUMATOID ARTHRITIS
     Dosage: 25 mg, 2 times/wk
     Dates: start: 19991101

REACTIONS (8)
  - Endodontic procedure [Not Recovered/Not Resolved]
  - Gingival pain [Recovered/Resolved]
  - Drug effect incomplete [Not Recovered/Not Resolved]
  - Oesophageal pain [Recovered/Resolved]
  - Pain in extremity [Recovered/Resolved]
  - Rheumatoid arthritis [Not Recovered/Not Resolved]
  - Ear infection [Not Recovered/Not Resolved]
  - Toothache [Not Recovered/Not Resolved]
